FAERS Safety Report 9372474 (Version 1)
Quarter: 2013Q2

REPORT INFORMATION
  Report Type: Report from Study
  Country: US (occurrence: US)
  Receive Date: 20130627
  Receipt Date: 20130627
  Transmission Date: 20140414
  Serious: Yes (Other)
  Sender: FDA-Public Use
  Company Number: US-MYLANLABS-2012S1025568

PATIENT
  Age: 67 Year
  Sex: Female

DRUGS (13)
  1. CLOZAPINE TABLETS [Suspect]
     Route: 048
     Dates: end: 20121224
  2. CLOZAPINE TABLETS [Suspect]
     Route: 048
     Dates: end: 20121224
  3. ACETAMINOPHEN [Concomitant]
  4. FOSAMAX [Concomitant]
  5. DIVALPROEX [Concomitant]
  6. PEPCID [Concomitant]
  7. VICODIN [Concomitant]
     Dosage: 5MG/325MG
  8. LEVOTHYROXINE [Concomitant]
  9. CLARITIN /00917501/ [Concomitant]
  10. METOPROLOL [Concomitant]
  11. MIRALAX /06344701/ [Concomitant]
  12. SENNA [Concomitant]
  13. TRAZODONE [Concomitant]

REACTIONS (1)
  - Granulocytopenia [Not Recovered/Not Resolved]
